FAERS Safety Report 9966136 (Version 1)
Quarter: 2014Q1

REPORT INFORMATION
  Report Type: Report from Study
  Country: US (occurrence: US)
  Receive Date: 20140305
  Receipt Date: 20140305
  Transmission Date: 20141002
  Serious: No
  Sender: FDA-Public Use
  Company Number: US-ABBVIE-13P-163-1127365-00

PATIENT
  Age: 43 Year
  Sex: Female
  Weight: 70.37 kg

DRUGS (3)
  1. HUMIRA [Suspect]
     Indication: CROHN^S DISEASE
     Dates: start: 20130614, end: 20130614
  2. HUMIRA [Suspect]
     Dates: start: 20130628, end: 20130628
  3. HUMIRA [Suspect]
     Dates: start: 20130712

REACTIONS (2)
  - Vertigo [Recovered/Resolved]
  - Vertigo [Recovered/Resolved]
